FAERS Safety Report 9059460 (Version 1)
Quarter: 2013Q1

REPORT INFORMATION
  Report Type: Spontaneous
  Country: BE (occurrence: BE)
  Receive Date: 20130212
  Receipt Date: 20130212
  Transmission Date: 20140127
  Serious: Yes (Other)
  Sender: FDA-Public Use
  Company Number: BE-009507513-1212BEL001525

PATIENT
  Age: 33 Year
  Sex: Female

DRUGS (1)
  1. NUVARING [Suspect]
     Dosage: UNK
     Route: 067
     Dates: start: 200412

REACTIONS (2)
  - Abortion spontaneous [Unknown]
  - Unintended pregnancy [Unknown]
